FAERS Safety Report 7389683-4 (Version None)
Quarter: 2011Q2

REPORT INFORMATION
  Report Type: 
  Country: None (occurrence: None)
  Receive Date: 20110401
  Receipt Date: 20110328
  Transmission Date: 20111010
  Serious: Yes (Disabling)
  Sender: FDA-Public Use
  Company Number: US-MERCK-1103USA03636

PATIENT
  Age: 68 Year
  Sex: Female

DRUGS (2)
  1. HYZAAR [Suspect]
     Indication: HYPERTENSION
     Route: 048
     Dates: start: 20100601, end: 20100701
  2. DIOVAN [Suspect]
     Route: 065

REACTIONS (3)
  - MOBILITY DECREASED [None]
  - ARTHRALGIA [None]
  - PAIN [None]
